FAERS Safety Report 6067454-9 (Version None)
Quarter: 2009Q1

REPORT INFORMATION
  Report Type: 
  Country: None (occurrence: None)
  Receive Date: 20090205
  Receipt Date: 20090123
  Transmission Date: 20090719
  Serious: Yes (Hospitalization, Other)
  Sender: FDA-Public Use
  Company Number: US-PFIZER INC-2009160905

PATIENT
  Sex: Female

DRUGS (8)
  1. BEXTRA [Suspect]
     Dosage: 10 MG, UNK
  2. ASPIRIN [Concomitant]
     Dosage: 325 MG, 1X/DAY
     Route: 048
  3. AMARYL [Concomitant]
     Dosage: 4 MG, 2X/DAY
     Route: 048
  4. ENALAPRIL [Concomitant]
     Dosage: 20 MG, 1X/DAY
     Route: 048
  5. TRAMADOL [Concomitant]
     Indication: ARTHRITIS
     Dosage: 50 MG, T.I.D. P.R.N
  6. TRAMADOL [Concomitant]
     Indication: PAIN
  7. NORVASC [Concomitant]
     Dosage: 10 MG, 1X/DAY
     Route: 048
  8. METFORMIN [Concomitant]
     Dosage: 500 MG, 2X/DAY
     Route: 048

REACTIONS (2)
  - CEREBROVASCULAR ACCIDENT [None]
  - TRANSIENT ISCHAEMIC ATTACK [None]
